FAERS Safety Report 6413303-6 (Version None)
Quarter: 2009Q4

REPORT INFORMATION
  Report Type: 
  Country: None (occurrence: None)
  Receive Date: 20091026
  Receipt Date: 20091014
  Transmission Date: 20100525
  Serious: Yes (Other)
  Sender: FDA-Public Use
  Company Number: US-ROCHE-662594

PATIENT
  Sex: Female

DRUGS (2)
  1. BONIVA [Suspect]
     Indication: CYSTIC FIBROSIS
     Dosage: DURATION REPORTED AS ONE DOSE; DOSAGE: 150
     Route: 048
     Dates: start: 20091010
  2. PROGRAF [Concomitant]

REACTIONS (6)
  - ABDOMINAL PAIN UPPER [None]
  - BACK PAIN [None]
  - INFLUENZA LIKE ILLNESS [None]
  - PAIN IN EXTREMITY [None]
  - TREMOR [None]
  - VOMITING [None]
